FAERS Safety Report 6688075-0 (Version None)
Quarter: 2010Q2

REPORT INFORMATION
  Report Type: 
  Country: None (occurrence: None)
  Receive Date: 20100420
  Receipt Date: 20100413
  Transmission Date: 20101027
  Serious: Yes (Hospitalization)
  Sender: FDA-Public Use
  Company Number: PHHY2010US23346

PATIENT
  Sex: Female
  Weight: 58.4 kg

DRUGS (13)
  1. EXJADE [Suspect]
     Indication: SICKLE CELL ANAEMIA
     Dosage: 500 MG, QID
     Route: 048
     Dates: start: 20080821
  2. DICYCLOMINE [Concomitant]
  3. BISACODYL [Concomitant]
  4. RISPERIDONE [Concomitant]
  5. DETROL [Concomitant]
  6. NEXIUM [Concomitant]
  7. FOLIC ACID [Concomitant]
  8. LAMICTAL [Concomitant]
  9. DEPAKOTE [Concomitant]
  10. IBUPROFEN [Concomitant]
  11. LYRICA [Concomitant]
  12. BACTRIM [Concomitant]
  13. PROZAC [Concomitant]

REACTIONS (1)
  - DEHYDRATION [None]
